FAERS Safety Report 6978048-2 (Version None)
Quarter: 2010Q3

REPORT INFORMATION
  Report Type: 
  Country: None (occurrence: None)
  Receive Date: 20100913
  Receipt Date: 20100901
  Transmission Date: 20110219
  Serious: Yes (Other)
  Sender: FDA-Public Use
  Company Number: CA-JNJFOC-20100901639

PATIENT
  Sex: Male

DRUGS (7)
  1. REMICADE [Suspect]
     Indication: UVEITIS
     Route: 042
  2. REMICADE [Suspect]
     Indication: RHEUMATOID ARTHRITIS
     Route: 042
  3. METHOTREXATE [Concomitant]
  4. GOLD [Concomitant]
  5. RAMIPRIL [Concomitant]
  6. NORTRIPTYLINE HCL [Concomitant]
  7. RISPERIDONE [Concomitant]

REACTIONS (1)
  - SQUAMOUS CELL CARCINOMA [None]
